FAERS Safety Report 4330905-1 (Version None)
Quarter: 2004Q1

REPORT INFORMATION
  Report Type: 
  Country: None (occurrence: None)
  Receive Date: 20040331
  Receipt Date: 20040311
  Transmission Date: 20041129
  Serious: Yes (Other)
  Sender: FDA-Public Use
  Company Number: USA040361748

PATIENT
  Age: 77 Year
  Sex: Female

DRUGS (1)
  1. EVISTA [Suspect]
     Indication: OSTEOPENIA
     Dosage: 60 MG/1 DAY
     Dates: start: 20010101

REACTIONS (2)
  - BLINDNESS [None]
  - MACULAR DEGENERATION [None]
